FAERS Safety Report 4851675-4 (Version None)
Quarter: 2005Q4

REPORT INFORMATION
  Report Type: 
  Country: None (occurrence: None)
  Receive Date: 20051209
  Receipt Date: 20051209
  Transmission Date: 20060501
  Serious: Yes (Other)
  Sender: FDA-Public Use
  Company Number: None

PATIENT
  Age: 28 Year
  Sex: Female
  Weight: 81.6475 kg

DRUGS (2)
  1. PAXIL CR [Suspect]
     Indication: ANXIETY
     Dosage: 37.5 MG 1 DAILY PO
     Route: 048
     Dates: start: 20021102, end: 20050502
  2. PAXIL CR [Suspect]
     Indication: DEPRESSION
     Dosage: 37.5 MG 1 DAILY PO
     Route: 048
     Dates: start: 20021102, end: 20050502

REACTIONS (9)
  - ABNORMAL BEHAVIOUR [None]
  - ANGER [None]
  - BIPOLAR I DISORDER [None]
  - DISTURBANCE IN ATTENTION [None]
  - EMOTIONAL DISORDER [None]
  - HYPOMANIA [None]
  - MANIA [None]
  - SUICIDAL IDEATION [None]
  - THINKING ABNORMAL [None]
